APPROVED DRUG PRODUCT: TRIAMCINOLONE ACETONIDE
Active Ingredient: TRIAMCINOLONE ACETONIDE
Strength: 0.1%
Dosage Form/Route: CREAM;TOPICAL
Application: A207117 | Product #001
Applicant: GLENMARK PHARMACEUTICALS LTD
Approved: Aug 5, 2016 | RLD: No | RS: No | Type: DISCN